FAERS Safety Report 20235549 (Version 2)
Quarter: 2022Q1

REPORT INFORMATION
  Report Type: Spontaneous
  Country: MQ (occurrence: None)
  Receive Date: 20211228
  Receipt Date: 20220125
  Transmission Date: 20220423
  Serious: Yes (Hospitalization)
  Sender: FDA-Public Use
  Company Number: MQ-Unichem Pharmaceuticals (USA) Inc-UCM202112-001203

PATIENT
  Age: 29 Year
  Sex: Male

DRUGS (1)
  1. DIVALPROEX SODIUM [Suspect]
     Active Substance: DIVALPROEX SODIUM
     Indication: Seizure

REACTIONS (1)
  - Pleural effusion [Recovered/Resolved]
